APPROVED DRUG PRODUCT: DIPHENHYDRAMINE HYDROCHLORIDE
Active Ingredient: DIPHENHYDRAMINE HYDROCHLORIDE
Strength: 50MG
Dosage Form/Route: CAPSULE;ORAL
Application: A089041 | Product #001
Applicant: SUPERPHARM CORP
Approved: May 15, 1985 | RLD: No | RS: No | Type: DISCN